FAERS Safety Report 6731650-5 (Version None)
Quarter: 2010Q2

REPORT INFORMATION
  Report Type: 
  Country: None (occurrence: None)
  Receive Date: 20100519
  Receipt Date: 20100507
  Transmission Date: 20101027
  Serious: Yes (Other)
  Sender: FDA-Public Use
  Company Number: US-JNJFOC-20100503860

PATIENT
  Age: 40 Year
  Sex: Female

DRUGS (5)
  1. PREZISTA [Suspect]
     Indication: HIV INFECTION
     Route: 065
     Dates: start: 20091101
  2. RITONAVIR [Suspect]
     Indication: HIV INFECTION
     Route: 065
  3. TRUVADA [Concomitant]
     Indication: HIV INFECTION
  4. MIGRAINE MEDICATIONS [Concomitant]
     Indication: MIGRAINE
     Route: 065
  5. VITAMIN TAB [Concomitant]

REACTIONS (1)
  - HAEMOGLOBIN DECREASED [None]
